FAERS Safety Report 4390608-4 (Version None)
Quarter: 2004Q2

REPORT INFORMATION
  Report Type: 
  Country: None (occurrence: None)
  Receive Date: 20040630
  Receipt Date: 20040622
  Transmission Date: 20050107
  Serious: Yes (Hospitalization)
  Sender: FDA-Public Use
  Company Number: PERC20040030

PATIENT
  Age: 76 Year
  Sex: Female
  Weight: 65.7716 kg

DRUGS (8)
  1. PERCOCET [Suspect]
     Indication: POST PROCEDURAL PAIN
     Dosage: 4 TABS PRN PO
     Route: 048
     Dates: start: 20040113, end: 20040113
  2. DILAUDID [Suspect]
     Indication: POST PROCEDURAL PAIN
     Dates: start: 20040113, end: 20040113
  3. OXYCONTIN [Suspect]
     Indication: POST PROCEDURAL PAIN
     Dosage: 20 MG Q12H PO
     Route: 048
     Dates: start: 20040113, end: 20040113
  4. PHENERGAN [Concomitant]
  5. FUROSEMIDE [Concomitant]
  6. SYNTHROID [Concomitant]
  7. DIOVAN [Concomitant]
  8. WARFARIN SODIUM [Concomitant]

REACTIONS (16)
  - AGGRESSION [None]
  - AGITATION [None]
  - ALCOHOL USE [None]
  - BRAIN DAMAGE [None]
  - BURNING SENSATION [None]
  - CONTUSION [None]
  - FEELING ABNORMAL [None]
  - HEART RATE INCREASED [None]
  - HYPERSENSITIVITY [None]
  - HYPOAESTHESIA [None]
  - HYPOTENSION [None]
  - INJURY [None]
  - MEDICATION ERROR [None]
  - MEMORY IMPAIRMENT [None]
  - OEDEMA PERIPHERAL [None]
  - PARANOIA [None]
